FAERS Safety Report 6852187-9 (Version None)
Quarter: 2010Q3

REPORT INFORMATION
  Report Type: 
  Country: None (occurrence: None)
  Receive Date: 20100717
  Receipt Date: 20071226
  Transmission Date: 20110219
  Serious: No
  Sender: FDA-Public Use
  Company Number: US-PFIZER INC-2007095204

PATIENT
  Sex: Female
  Weight: 61.818 kg

DRUGS (16)
  1. CHANTIX [Suspect]
     Indication: SMOKING CESSATION THERAPY
     Dates: start: 20071029
  2. EFFEXOR [Concomitant]
  3. ALL OTHER THERAPEUTIC PRODUCTS [Concomitant]
  4. ALL OTHER THERAPEUTIC PRODUCTS [Concomitant]
  5. ALL OTHER THERAPEUTIC PRODUCTS [Concomitant]
  6. NEURONTIN [Concomitant]
  7. CELEBREX [Concomitant]
  8. FLEXERIL [Concomitant]
  9. MULTI-VITAMINS [Concomitant]
  10. VITAMIN B-12 [Concomitant]
  11. DRUG, UNSPECIFIED [Concomitant]
  12. VENLAFAXINE HYDROCHLORIDE [Concomitant]
  13. LANOXIN [Concomitant]
  14. ACIPHEX [Concomitant]
  15. ALL OTHER THERAPEUTIC PRODUCTS [Concomitant]
  16. SERETIDE MITE [Concomitant]

REACTIONS (2)
  - SLEEP DISORDER [None]
  - URINARY INCONTINENCE [None]
